FAERS Safety Report 9189380 (Version 1)
Quarter: 2013Q1

REPORT INFORMATION
  Report Type: Spontaneous
  Country: US (occurrence: None)
  Receive Date: 20130322
  Receipt Date: 20130322
  Transmission Date: 20140127
  Serious: Yes (Life-Threatening, Other)
  Sender: FDA-Public Use
  Company Number: None

PATIENT
  Age: 67 Year
  Sex: Female
  Weight: 40.82 kg

DRUGS (1)
  1. DEPAKOTE [Suspect]
     Indication: WEIGHT DECREASED

REACTIONS (3)
  - Somnolence [None]
  - Abnormal behaviour [None]
  - Impaired driving ability [None]
